FAERS Safety Report 11723130 (Version 2)
Quarter: 2015Q4

REPORT INFORMATION
  Report Type: Spontaneous
  Country: US (occurrence: US)
  Receive Date: 20151111
  Receipt Date: 20151130
  Transmission Date: 20160304
  Serious: Yes (Other)
  Sender: FDA-Public Use
  Company Number: US-PFIZER INC-2015025765

PATIENT
  Age: 79 Year
  Sex: Female

DRUGS (19)
  1. SUTENT [Suspect]
     Active Substance: SUNITINIB MALATE
     Indication: SOFT TISSUE SARCOMA
     Dosage: 25 MG, CYCLIC (TAKE ONE CAPSULE BY MOUTH DAILY FOR 28DAYS OFF 14 DAYS, REPEAT)
     Route: 048
     Dates: start: 20121022
  2. DOCUSATE SODIUM. [Concomitant]
     Active Substance: DOCUSATE SODIUM
     Dosage: 100 MG, DAILY (PRN)
     Route: 048
     Dates: start: 20120327
  3. MEGACE [Concomitant]
     Active Substance: MEGESTROL ACETATE
     Dosage: SUSPENSION, 3X/DAY
     Route: 048
     Dates: start: 20121201
  4. ALLOPURINOL. [Concomitant]
     Active Substance: ALLOPURINOL
     Dosage: 300 MG, DAILY
     Route: 048
     Dates: start: 20101230
  5. MIRALAX [Concomitant]
     Active Substance: POLYETHYLENE GLYCOL 3350
     Dosage: UNK UNK, DAILY
     Route: 048
     Dates: start: 20121022
  6. SPIRONOLACTONE. [Concomitant]
     Active Substance: SPIRONOLACTONE
     Dosage: 25 MG, DAILY
     Route: 048
     Dates: start: 20101230
  7. VERAPAMIL HCL [Concomitant]
     Active Substance: VERAPAMIL HYDROCHLORIDE
     Dosage: (0.5 TABLET (OF 240 MG) TABLE1 SR 24 HR), DAILY
     Route: 048
     Dates: start: 20101227
  8. LEVOTHYROXINE SODIUM. [Concomitant]
     Active Substance: LEVOTHYROXINE SODIUM
     Dosage: UNK
     Dates: start: 20121218
  9. CALCIUM-D [Concomitant]
     Dosage: (600-200 MG - UNITS), DAILY
     Route: 048
     Dates: start: 20120327
  10. PRADAXA [Concomitant]
     Active Substance: DABIGATRAN ETEXILATE MESYLATE
     Dosage: 150 MG, 2X/DAY
     Route: 048
     Dates: start: 20130219
  11. K-DUR [Concomitant]
     Active Substance: POTASSIUM CHLORIDE
     Dosage: 10 MEQ, 2X/DAY
     Route: 048
     Dates: start: 20140622
  12. LANOXIN [Concomitant]
     Active Substance: DIGOXIN
     Dosage: .125 MG, DAILY
     Route: 048
     Dates: start: 20101227
  13. LEVOTHROID [Concomitant]
     Active Substance: LEVOTHYROXINE SODIUM
     Dosage: 25 ?G, DAILY
     Route: 048
     Dates: start: 20130213
  14. METFORMIN HCL [Concomitant]
     Active Substance: METFORMIN HYDROCHLORIDE
     Dosage: 500 MG, (TAKE AS DIRECTED)
     Route: 048
     Dates: start: 20101230
  15. ALDACTONE [Concomitant]
     Active Substance: SPIRONOLACTONE
     Dosage: 25 MG, DAILY
     Route: 048
     Dates: start: 20130219
  16. TYLENOL EXTRA STRENGTH [Concomitant]
     Active Substance: ACETAMINOPHEN
     Dosage: 500 MG, (Q 4 HOURS PRN)
     Route: 048
     Dates: start: 20120327
  17. FUROSEMIDE. [Concomitant]
     Active Substance: FUROSEMIDE
     Dosage: 80 MG, DAILY
     Route: 048
     Dates: start: 20101230
  18. CRESTOR [Concomitant]
     Active Substance: ROSUVASTATIN CALCIUM
     Dosage: 10 MG, DAILY
     Route: 048
     Dates: start: 20101230
  19. SUTENT [Suspect]
     Active Substance: SUNITINIB MALATE
     Dosage: 25 MG, DAILY
     Route: 048
     Dates: start: 20130213

REACTIONS (13)
  - Skin disorder [Unknown]
  - Genital haemorrhage [Unknown]
  - Disease progression [Unknown]
  - Arthropathy [Unknown]
  - Oedema [Unknown]
  - Decreased appetite [Unknown]
  - Menstrual disorder [Unknown]
  - Cough [Unknown]
  - Fluid overload [Unknown]
  - Soft tissue sarcoma [Unknown]
  - Abnormal weight gain [Unknown]
  - Postmenopausal haemorrhage [Unknown]
  - Product use issue [Unknown]
